FAERS Safety Report 4668206-4 (Version None)
Quarter: 2005Q2

REPORT INFORMATION
  Report Type: 
  Country: None (occurrence: None)
  Receive Date: 20050523
  Receipt Date: 20041221
  Transmission Date: 20051028
  Serious: Yes (Other)
  Sender: FDA-Public Use
  Company Number: PHEH2004US13575

PATIENT
  Age: 65 Year
  Sex: Male

DRUGS (7)
  1. PAMIDRONATE DISODIUM [Suspect]
     Dosage: 90MG Q4WEEKS
     Dates: start: 19960101, end: 20040301
  2. ZOMETA [Suspect]
     Dosage: 4MG Q4WEEKS
     Dates: start: 20040401, end: 20040701
  3. THALIDOMIDE [Concomitant]
     Dosage: 4MG Q4 WEEKS
     Route: 048
     Dates: start: 20010515, end: 20020501
  4. DEXAMETHASONE [Concomitant]
     Dosage: 40MG QWEEK
     Dates: start: 20011201, end: 20020501
  5. VELCADE [Concomitant]
     Dosage: 0.3MG/M2
     Dates: start: 20040201, end: 20040901
  6. CYTOXAN [Concomitant]
     Dosage: 1000MG/M2
     Dates: start: 20030401, end: 20030501
  7. DOXIL [Concomitant]
     Dosage: 40MG/M2
     Dates: start: 20030601, end: 20031001

REACTIONS (1)
  - OSTEONECROSIS [None]
